FAERS Safety Report 5123868-2 (Version None)
Quarter: 2006Q4

REPORT INFORMATION
  Report Type: 
  Country: None (occurrence: None)
  Receive Date: 20061010
  Receipt Date: 20060929
  Transmission Date: 20070319
  Serious: Yes (Other)
  Sender: FDA-Public Use
  Company Number: ES-GLAXOSMITHKLINE-B0441244A

PATIENT
  Age: 42 Year
  Sex: Male

DRUGS (1)
  1. CEFUROXIME [Suspect]
     Dosage: 500MG UNKNOWN
     Route: 048
     Dates: start: 20060925, end: 20060925

REACTIONS (6)
  - BRONCHOSPASM [None]
  - CONVULSION [None]
  - INFLAMMATION [None]
  - PRURITUS [None]
  - RASH [None]
  - SKIN INFLAMMATION [None]
